FAERS Safety Report 7756773-3 (Version None)
Quarter: 2011Q3

REPORT INFORMATION
  Report Type: 
  Country: None (occurrence: None)
  Receive Date: 20110916
  Receipt Date: 20110913
  Transmission Date: 20111222
  Serious: Yes (Other)
  Sender: FDA-Public Use
  Company Number: SE-PFIZER INC-2011216435

PATIENT
  Age: 36 Year
  Sex: Female

DRUGS (1)
  1. SERTRALINE HYDROCHLORIDE [Suspect]
     Dosage: 25-50 MG DAILY
     Dates: start: 20110831

REACTIONS (2)
  - NIPPLE EXUDATE BLOODY [None]
  - METRORRHAGIA [None]
